FAERS Safety Report 8590340-7 (Version None)
Quarter: 2012Q3

REPORT INFORMATION
  Report Type: 
  Country: None (occurrence: None)
  Receive Date: 20120813
  Receipt Date: 20120731
  Transmission Date: 20120928
  Serious: Yes (Other)
  Sender: FDA-Public Use
  Company Number: CA-ROCHE-1095048

PATIENT
  Sex: Female
  Weight: 96.248 kg

DRUGS (6)
  1. METHOTREXATE [Concomitant]
  2. FOLIC ACID [Concomitant]
  3. NAPROXEN [Concomitant]
  4. ACTEMRA [Suspect]
     Indication: RHEUMATOID ARTHRITIS
     Route: 042
     Dates: start: 20120209, end: 20120628
  5. PREDNISONE TAB [Concomitant]
  6. PLAQUENIL [Concomitant]

REACTIONS (9)
  - ACNE [None]
  - PRURITUS [None]
  - RHEUMATOID ARTHRITIS [None]
  - HEADACHE [None]
  - DRUG INEFFECTIVE [None]
  - FATIGUE [None]
  - ERYTHEMA [None]
  - OEDEMA PERIPHERAL [None]
  - EYE DISCHARGE [None]
